FAERS Safety Report 6368609-6 (Version None)
Quarter: 2009Q3

REPORT INFORMATION
  Report Type: 
  Country: None (occurrence: None)
  Receive Date: 20090922
  Receipt Date: 20090622
  Transmission Date: 20100115
  Serious: Yes (Hospitalization)
  Sender: FDA-Public Use
  Company Number: BR-PFIZER INC-2009271261

PATIENT
  Age: 39 Year

DRUGS (2)
  1. GEODON [Suspect]
     Indication: SCHIZOAFFECTIVE DISORDER
     Dosage: 120MG DAILY
     Route: 048
  2. RIVOTRIL [Concomitant]
     Indication: INSOMNIA
     Dosage: UNK

REACTIONS (2)
  - APPENDICECTOMY [None]
  - WEIGHT DECREASED [None]
